FAERS Safety Report 23472551 (Version 1)
Quarter: 2024Q1

REPORT INFORMATION
  Report Type: Spontaneous
  Country: US (occurrence: US)
  Receive Date: 20240202
  Receipt Date: 20240202
  Transmission Date: 20240410
  Serious: No
  Sender: FDA-Public Use
  Company Number: US-009507513-2401USA015050

PATIENT
  Sex: Female

DRUGS (2)
  1. CUBICIN [Suspect]
     Active Substance: DAPTOMYCIN
     Indication: Pyoderma gangrenosum
  2. CUBICIN [Suspect]
     Active Substance: DAPTOMYCIN
     Indication: Necrotising fasciitis

REACTIONS (1)
  - Product use in unapproved indication [Unknown]
